FAERS Safety Report 4597961-7 (Version None)
Quarter: 2005Q1

REPORT INFORMATION
  Report Type: 
  Country: None (occurrence: None)
  Receive Date: 20050301
  Receipt Date: 20050215
  Transmission Date: 20050727
  Serious: Yes (Other)
  Sender: FDA-Public Use
  Company Number: 200510665BCC

PATIENT
  Sex: Male
  Weight: 91.6266 kg

DRUGS (4)
  1. REGIMEN BAYER 81 MG (ACETYLSALCYLIC ACID) [Suspect]
     Indication: CARDIAC DISORDER
     Dosage: 81 MG, IRR, ORAL
     Route: 048
  2. PLENDIL [Concomitant]
     Indication: PROPHYLAXIS
  3. NADELOL [Concomitant]
  4. PLAVIX [Concomitant]

REACTIONS (4)
  - FAECES DISCOLOURED [None]
  - GASTRIC HAEMORRHAGE [None]
  - GASTRIC ULCER [None]
  - OESOPHAGEAL ULCER [None]
